FAERS Safety Report 5830255-8 (Version None)
Quarter: 2008Q3

REPORT INFORMATION
  Report Type: 
  Country: None (occurrence: None)
  Receive Date: 20080801
  Receipt Date: 20080724
  Transmission Date: 20090109
  Serious: Yes (Hospitalization)
  Sender: FDA-Public Use
  Company Number: B0531501A

PATIENT
  Sex: Female

DRUGS (6)
  1. DEROXAT [Suspect]
     Indication: DRUG USE FOR UNKNOWN INDICATION
     Dosage: 20MG PER DAY
     Route: 048
  2. SINTROM [Suspect]
     Indication: DRUG USE FOR UNKNOWN INDICATION
     Dosage: 1MG AS REQUIRED
     Route: 048
     Dates: start: 20071101
  3. DILATREND [Concomitant]
     Route: 048
  4. LASILACTON [Concomitant]
     Route: 048
  5. NOCTAMID [Concomitant]
     Route: 048
  6. MADOPAR [Concomitant]
     Route: 048

REACTIONS (8)
  - ANAEMIA [None]
  - ANGIODYSPLASIA [None]
  - ASTHENIA [None]
  - GASTROINTESTINAL HAEMORRHAGE [None]
  - HAEMOGLOBIN DECREASED [None]
  - HELICOBACTER PYLORI IDENTIFICATION TEST NEGATIVE [None]
  - INTERNATIONAL NORMALISED RATIO INCREASED [None]
  - PROTHROMBIN TIME PROLONGED [None]
